FAERS Safety Report 4313394-2 (Version None)
Quarter: 2004Q1

REPORT INFORMATION
  Report Type: 
  Country: None (occurrence: None)
  Receive Date: 20040304
  Receipt Date: 20040213
  Transmission Date: 20041129
  Serious: Yes (Other)
  Sender: FDA-Public Use
  Company Number: USA040259396

PATIENT
  Age: 30 Year
  Sex: Male
  Weight: 136 kg

DRUGS (2)
  1. STRATTERA [Suspect]
     Dosage: 40 MG/DAY
  2. PAXIL [Concomitant]

REACTIONS (1)
  - CONVULSION [None]
